FAERS Safety Report 4481396-1 (Version None)
Quarter: 2004Q3

REPORT INFORMATION
  Report Type: 
  Country: None (occurrence: None)
  Receive Date: 20040923
  Receipt Date: 20040520
  Transmission Date: 20050211
  Serious: No
  Sender: FDA-Public Use
  Company Number: USA040568161

PATIENT
  Age: 74 Year
  Sex: Female

DRUGS (1)
  1. FORTEO [Suspect]
     Dates: start: 20040501

REACTIONS (5)
  - DEHYDRATION [None]
  - DIARRHOEA [None]
  - INFLUENZA [None]
  - NAUSEA [None]
  - VOMITING [None]
